FAERS Safety Report 6526848-5 (Version None)
Quarter: 2010Q1

REPORT INFORMATION
  Report Type: 
  Country: None (occurrence: None)
  Receive Date: 20100105
  Receipt Date: 20091228
  Transmission Date: 20100710
  Serious: Yes (Hospitalization)
  Sender: FDA-Public Use
  Company Number: FR-ASTRAZENECA-2009SE33926

PATIENT
  Age: 29985 Day
  Sex: Female

DRUGS (5)
  1. CRESTOR [Suspect]
     Route: 048
  2. TERALITHE LP [Suspect]
     Dosage: 100 MG EVERY TWO DAYS, 50 MG THE OTHER DAYS
     Route: 048
     Dates: start: 20090801, end: 20091018
  3. GLUCOR [Suspect]
     Route: 048
  4. RISPERDAL [Concomitant]
     Dates: end: 20091013
  5. XANAX [Concomitant]
     Dates: end: 20091013

REACTIONS (4)
  - ANTIPSYCHOTIC DRUG LEVEL INCREASED [None]
  - CONFUSIONAL STATE [None]
  - LOCKED-IN SYNDROME [None]
  - THERAPEUTIC AGENT TOXICITY [None]
